FAERS Safety Report 18444701 (Version 1)
Quarter: 2020Q4

REPORT INFORMATION
  Report Type: Spontaneous
  Country: US (occurrence: US)
  Receive Date: 20201030
  Receipt Date: 20201030
  Transmission Date: 20210114
  Serious: Yes (Other)
  Sender: FDA-Public Use
  Company Number: US-PFIZER INC-2020393081

PATIENT
  Age: 23 Year
  Sex: Female

DRUGS (2)
  1. LABETALOL [Suspect]
     Active Substance: LABETALOL\LABETALOL HYDROCHLORIDE
     Indication: PRE-ECLAMPSIA
     Dosage: UNK
     Route: 048
  2. NIFEDIPINE. [Suspect]
     Active Substance: NIFEDIPINE
     Indication: PRE-ECLAMPSIA
     Dosage: TAB
     Route: 048

REACTIONS (4)
  - Withdrawal hypertension [Recovered/Resolved]
  - Posterior reversible encephalopathy syndrome [Recovering/Resolving]
  - Eclampsia [Recovered/Resolved]
  - Acute kidney injury [Recovering/Resolving]
